FAERS Safety Report 12581990 (Version 1)
Quarter: 2016Q3

REPORT INFORMATION
  Report Type: Spontaneous
  Country: US (occurrence: US)
  Receive Date: 20160722
  Receipt Date: 20160722
  Transmission Date: 20161109
  Serious: Yes (Death, Hospitalization, Other)
  Sender: FDA-Public Use
  Company Number: US-STRIDES ARCOLAB LIMITED-2016SP003040

PATIENT

DRUGS (7)
  1. RITUXIMAB [Suspect]
     Active Substance: RITUXIMAB
     Dosage: 375 MG/M2, UNK
     Dates: start: 200908
  2. RITUXIMAB [Suspect]
     Active Substance: RITUXIMAB
     Dosage: 375 MG/M2, UNK
     Dates: start: 20130906
  3. AZATHIOPRINE. [Suspect]
     Active Substance: AZATHIOPRINE
     Indication: IMMUNOSUPPRESSION
     Dosage: 3.63 MG/KG, UNK
     Dates: start: 200908, end: 20110716
  4. MYCOPHENOLATE MOFETIL. [Suspect]
     Active Substance: MYCOPHENOLATE MOFETIL
     Indication: IMMUNOSUPPRESSION
     Dosage: 1500 MG, BID
     Dates: start: 200807, end: 200908
  5. PREDNISOLONE. [Suspect]
     Active Substance: PREDNISOLONE
     Indication: IMMUNOSUPPRESSION
     Dosage: 40 MG, QD
     Dates: start: 200807, end: 200908
  6. RITUXIMAB [Suspect]
     Active Substance: RITUXIMAB
     Indication: IMMUNOSUPPRESSION
     Dosage: 375 MG/M2, UNK
     Dates: start: 20130614
  7. RITUXIMAB [Suspect]
     Active Substance: RITUXIMAB
     Dosage: 375 MG/M2, UNK
     Dates: start: 201207

REACTIONS (10)
  - Disorientation [Unknown]
  - White matter lesion [Unknown]
  - JC virus infection [Unknown]
  - Lymphopenia [Unknown]
  - CSF protein increased [Unknown]
  - Progressive multifocal leukoencephalopathy [Fatal]
  - Abulia [Unknown]
  - Encephalopathy [Unknown]
  - Hyperreflexia [Unknown]
  - Clonus [Unknown]
